FAERS Safety Report 7745410-X (Version None)
Quarter: 2011Q3

REPORT INFORMATION
  Report Type: 
  Country: None (occurrence: None)
  Receive Date: 20110913
  Receipt Date: 20110907
  Transmission Date: 20111222
  Serious: Yes (Life-Threatening, Hospitalization)
  Sender: FDA-Public Use
  Company Number: NL-GENZYME-CLOF-1001647

PATIENT
  Sex: Female
  Weight: 72 kg

DRUGS (10)
  1. TRAMADOL HYDROCHLORIDE [Concomitant]
     Indication: PAIN
     Dosage: 3X50 MG
     Route: 048
     Dates: start: 20110517, end: 20110531
  2. POTASSIUM CHLORIDE [Concomitant]
     Indication: BLOOD POTASSIUM DECREASED
     Dosage: UNK
     Route: 042
     Dates: start: 20110530, end: 20110531
  3. FUROSEMIDE [Concomitant]
     Indication: OEDEMA
     Dosage: 60 MG 1X
     Route: 042
     Dates: start: 20110530, end: 20110531
  4. LORAZEPAM [Concomitant]
     Indication: SEDATION
     Dosage: 1 MG, PRN
     Route: 048
     Dates: start: 20110513, end: 20110531
  5. AMSACRINE [Suspect]
     Indication: ACUTE LEUKAEMIA
     Dosage: 220 MG, UNK
     Route: 042
     Dates: start: 20110515, end: 20110517
  6. FLUCONAZOLE [Concomitant]
     Indication: PROPHYLAXIS
     Dosage: 1X200 MG
     Route: 048
     Dates: start: 20110512, end: 20110531
  7. EVOLTRA [Suspect]
     Indication: ACUTE LEUKAEMIA
     Dosage: 18.5 MG, UNK
     Route: 042
     Dates: start: 20110512, end: 20110516
  8. PIPERACILLIN SODIUM W [Concomitant]
     Indication: INFECTION
     Dosage: UNK 3X
     Route: 042
     Dates: start: 20110524, end: 20110531
  9. CYTARABINE [Suspect]
     Indication: ACUTE LEUKAEMIA
     Dosage: 3700 MG, UNK
     Route: 042
     Dates: start: 20110512, end: 20110518
  10. AMPHOTERICIN B [Concomitant]
     Indication: INFECTION
     Dosage: 2X200 MG
     Route: 048
     Dates: start: 20110530, end: 20110531

REACTIONS (1)
  - CARDIOMYOPATHY [None]
